FAERS Safety Report 9648108 (Version 1)
Quarter: 2013Q4

REPORT INFORMATION
  Report Type: Spontaneous
  Country: GB (occurrence: GB)
  Receive Date: 20131028
  Receipt Date: 20131028
  Transmission Date: 20140711
  Serious: Yes (Other)
  Sender: FDA-Public Use
  Company Number: GB-UCBSA-101147

PATIENT
  Sex: Male

DRUGS (2)
  1. NEUPRO [Suspect]
     Dosage: DOSE: 1 MG
  2. NEUPRO [Suspect]
     Dosage: DOSE: 2 MG

REACTIONS (1)
  - Dystonia [Unknown]
